FAERS Safety Report 10218761 (Version 1)
Quarter: 2014Q1

REPORT INFORMATION
  Report Type: Spontaneous
  Country: US (occurrence: None)
  Receive Date: 20140306
  Receipt Date: 20140306
  Transmission Date: 20141002
  Serious: Yes (Other)
  Sender: FDA-Public Use
  Company Number: 163-21880-13080133

PATIENT
  Age: 65 Year
  Sex: Male
  Weight: 102.5 kg

DRUGS (6)
  1. REVLIMID [Suspect]
     Indication: PLASMA CELL MYELOMA
     Dosage: 25 MG, 1 IN 1 D, PO  12/ 2012 - UNKNOWN THERAPY DATES
     Route: 048
     Dates: start: 201212
  2. DEXAMETHASONE (DEXAMETHASONE) [Concomitant]
  3. LISINOPRIL (LISINOPRIL) [Concomitant]
  4. PRILOSEC (OMEPRAZOLE) [Concomitant]
  5. ASPIRIN (ACETYLSALICYLIC ACID) (CHEWABLE TABLET) [Concomitant]
  6. ANTIBIOTICS (ANTIBIOTICS) [Concomitant]

REACTIONS (7)
  - Chest pain [None]
  - Local swelling [None]
  - Dyspnoea [None]
  - Rash [None]
  - Blister [None]
  - Flushing [None]
  - Rash pruritic [None]
